FAERS Safety Report 6180288-X (Version None)
Quarter: 2009Q2

REPORT INFORMATION
  Report Type: 
  Country: None (occurrence: None)
  Receive Date: 20090506
  Receipt Date: 20090501
  Transmission Date: 20091009
  Serious: Yes (Death, Other)
  Sender: FDA-Public Use
  Company Number: US-RANBAXY-2009US-22457

PATIENT

DRUGS (3)
  1. ISOTRETINOIN [Suspect]
     Indication: DRUG USE FOR UNKNOWN INDICATION
     Dosage: 10 MG, UNK
     Route: 048
  2. ISOTRETINOIN [Suspect]
     Dosage: 20 MG, UNK
     Route: 048
  3. ISOTRETINOIN [Suspect]
     Dosage: 40.000000 MG, UNK
     Route: 048

REACTIONS (2)
  - NEUROBLASTOMA [None]
  - OFF LABEL USE [None]
